FAERS Safety Report 6838883-8 (Version None)
Quarter: 2010Q3

REPORT INFORMATION
  Report Type: 
  Country: None (occurrence: None)
  Receive Date: 20100713
  Receipt Date: 20070808
  Transmission Date: 20110219
  Serious: No
  Sender: FDA-Public Use
  Company Number: US-PFIZER INC-2007043741

PATIENT
  Sex: Female
  Weight: 54 kg

DRUGS (6)
  1. CHANTIX [Suspect]
     Indication: SMOKING CESSATION THERAPY
     Dates: start: 20070428, end: 20070505
  2. ESTROGENS [Concomitant]
  3. ATENOLOL [Concomitant]
  4. AZITHROMYCIN [Concomitant]
  5. VITAMINS [Concomitant]
  6. LEXAPRO [Concomitant]
     Route: 048

REACTIONS (4)
  - BRONCHITIS [None]
  - MALAISE [None]
  - NAUSEA [None]
  - PULMONARY CONGESTION [None]
